FAERS Safety Report 4881111-3 (Version None)
Quarter: 2005Q4

REPORT INFORMATION
  Report Type: 
  Country: None (occurrence: None)
  Receive Date: 20051223
  Receipt Date: 20050909
  Transmission Date: 20060501
  Serious: No
  Sender: FDA-Public Use
  Company Number: 05P-163-0310607-00

PATIENT
  Age: 65 Year
  Sex: Female
  Weight: 68.0396 kg

DRUGS (7)
  1. HUMIRA [Suspect]
     Indication: RHEUMATOID ARTHRITIS
     Dosage: 40 MG, 1 IN 2 WK, SUBCUTANEOUS
     Route: 058
     Dates: start: 20040501
  2. IRON [Concomitant]
  3. DOCUSATE SODIUM [Concomitant]
  4. MAXZIDE [Concomitant]
  5. FOLIC ACID [Concomitant]
  6. LANSOPRAZOLE [Concomitant]
  7. PROPACET 100 [Concomitant]

REACTIONS (3)
  - NASAL CONGESTION [None]
  - NASOPHARYNGITIS [None]
  - SPUTUM DISCOLOURED [None]
